FAERS Safety Report 7310794-3 (Version None)
Quarter: 2011Q1

REPORT INFORMATION
  Report Type: 
  Country: None (occurrence: None)
  Receive Date: 20110224
  Receipt Date: 20110214
  Transmission Date: 20110831
  Serious: Yes (Other)
  Sender: FDA-Public Use
  Company Number: US-CEPHALON-2011000734

PATIENT
  Sex: Male
  Weight: 136 kg

DRUGS (2)
  1. SYNTHROID [Concomitant]
     Dates: start: 20100401
  2. NUVIGIL [Suspect]
     Indication: SLEEP APNOEA SYNDROME
     Route: 048
     Dates: start: 20101001, end: 20101201

REACTIONS (4)
  - RASH PRURITIC [None]
  - IMMUNE SYSTEM DISORDER [None]
  - PAIN [None]
  - RASH [None]
